FAERS Safety Report 13038191 (Version 1)
Quarter: 2016Q4

REPORT INFORMATION
  Report Type: Report from Study
  Country: US (occurrence: US)
  Receive Date: 20161218
  Receipt Date: 20161218
  Transmission Date: 20170207
  Serious: Yes (Other)
  Sender: FDA-Public Use
  Company Number: US-AMGEN-USASL2016176735

PATIENT
  Age: 74 Year
  Sex: Female

DRUGS (1)
  1. PROLIA [Suspect]
     Active Substance: DENOSUMAB
     Indication: OSTEOPOROSIS POSTMENOPAUSAL
     Dosage: 60 MG, Q6MO
     Route: 065
     Dates: start: 2015

REACTIONS (8)
  - Arthralgia [Recovering/Resolving]
  - Mouth haemorrhage [Recovering/Resolving]
  - Osteopenia [Unknown]
  - Pain in extremity [Unknown]
  - Tooth disorder [Recovering/Resolving]
  - Kidney infection [Recovering/Resolving]
  - Tooth fracture [Unknown]
  - Jaw disorder [Unknown]
